FAERS Safety Report 8519281-8 (Version None)
Quarter: 2012Q3

REPORT INFORMATION
  Report Type: 
  Country: None (occurrence: None)
  Receive Date: 20120718
  Receipt Date: 20120704
  Transmission Date: 20120928
  Serious: Yes (Hospitalization, Other)
  Sender: FDA-Public Use
  Company Number: DE-ELI_LILLY_AND_COMPANY-DE201206000589

PATIENT
  Age: 44 Year
  Sex: Female
  Weight: 80 kg

DRUGS (4)
  1. CYMBALTA [Suspect]
     Indication: DEPRESSION
     Dosage: 30 MG, UNKNOWN
     Route: 048
     Dates: start: 20120224
  2. RABEPRAZOLE SODIUM [Concomitant]
     Dosage: 20 MG, UNK
  3. NOVALGIN [Concomitant]
  4. CYMBALTA [Suspect]
     Dosage: 60 MG, UNKNOWN
     Dates: start: 20120224

REACTIONS (5)
  - CONVULSION [None]
  - FALL [None]
  - LOSS OF CONSCIOUSNESS [None]
  - HEAD INJURY [None]
  - ANEURYSM [None]
